FAERS Safety Report 6867047-7 (Version None)
Quarter: 2010Q3

REPORT INFORMATION
  Report Type: 
  Country: None (occurrence: None)
  Receive Date: 20100722
  Receipt Date: 20100722
  Transmission Date: 20110219
  Serious: No
  Sender: FDA-Public Use
  Company Number: None

PATIENT
  Age: 82 Year
  Sex: Male
  Weight: 58.9676 kg

DRUGS (2)
  1. WARFARIN SODIUM [Suspect]
     Indication: THROMBOSIS
     Dosage: 2.5 MG DAILY ONE
     Dates: start: 20100201
  2. WARFARIN SODIUM [Suspect]
     Indication: THROMBOSIS
     Dosage: 2.5 MG DAILY ONE
     Dates: start: 20100701

REACTIONS (1)
  - ALOPECIA [None]
